FAERS Safety Report 9148062 (Version 2)
Quarter: 2013Q2

REPORT INFORMATION
  Report Type: Spontaneous
  Country: US (occurrence: US)
  Receive Date: 20130308
  Receipt Date: 20130610
  Transmission Date: 20140414
  Serious: No
  Sender: FDA-Public Use
  Company Number: US-009507513-1302USA011059

PATIENT
  Age: 51 Year
  Sex: Female

DRUGS (2)
  1. PEGINTRON [Suspect]
     Indication: HEPATITIS C
     Dosage: 80 MICROGRAM, QW
     Dates: start: 20130208
  2. REBETOL [Suspect]
     Route: 048

REACTIONS (3)
  - Influenza like illness [Recovering/Resolving]
  - Device issue [Unknown]
  - Overdose [Unknown]
